FAERS Safety Report 7354860-5 (Version None)
Quarter: 2011Q1

REPORT INFORMATION
  Report Type: 
  Country: None (occurrence: None)
  Receive Date: 20110307
  Receipt Date: 20110223
  Transmission Date: 20110831
  Serious: Yes (Other)
  Sender: FDA-Public Use
  Company Number: CA-1184960

PATIENT
  Sex: Female

DRUGS (4)
  1. NEVANAC [Suspect]
     Indication: CYSTOID MACULAR OEDEMA
     Dosage: (1 GTT TID OS OPHTHALMIC)
     Route: 047
     Dates: start: 20100816, end: 20101118
  2. COSOPT [Concomitant]
  3. PRED FORT [Concomitant]
  4. ALPHAGAN [Concomitant]

REACTIONS (2)
  - OCULAR HYPERAEMIA [None]
  - ULCERATIVE KERATITIS [None]
